FAERS Safety Report 5587616-4 (Version None)
Quarter: 2008Q1

REPORT INFORMATION
  Report Type: 
  Country: None (occurrence: None)
  Receive Date: 20080110
  Receipt Date: 20071231
  Transmission Date: 20080703
  Serious: Yes (Death)
  Sender: FDA-Public Use
  Company Number: US-MERCK-0801USA00214

PATIENT
  Age: 54 Year
  Sex: Female

DRUGS (9)
  1. SINGULAIR [Suspect]
     Route: 048
  2. DOXEPIN HYDROCHLORIDE [Suspect]
     Route: 048
  3. CITALOPRAM [Suspect]
     Route: 048
  4. TRAZODONE HYDROCHLORIDE [Suspect]
     Route: 048
  5. FLURAZEPAM [Suspect]
     Route: 048
  6. ACETAMINOPHEN [Suspect]
     Route: 048
  7. DULOXETINE HYDROCHLORIDE [Suspect]
     Route: 048
  8. FLUOXETINE [Suspect]
     Route: 048
  9. FENOFIBRATE [Suspect]
     Route: 048

REACTIONS (2)
  - COMPLETED SUICIDE [None]
  - OVERDOSE [None]
